FAERS Safety Report 15936328 (Version 1)
Quarter: 2019Q1

REPORT INFORMATION
  Report Type: Spontaneous
  Country: US (occurrence: US)
  Receive Date: 20190207
  Receipt Date: 20190207
  Transmission Date: 20190417
  Serious: Yes (Hospitalization, Other)
  Sender: FDA-Public Use
  Company Number: None

PATIENT
  Age: 75 Year
  Sex: Male
  Weight: 90 kg

DRUGS (1)
  1. GABAPENTIN. [Suspect]
     Active Substance: GABAPENTIN
     Indication: HOSPITALISATION
     Dosage: ?          QUANTITY:1 CAPSULE(S);?
     Route: 048
     Dates: start: 20181226, end: 20190206

REACTIONS (15)
  - Sleep disorder [None]
  - Feeling abnormal [None]
  - Gait disturbance [None]
  - Somnolence [None]
  - Loss of consciousness [None]
  - Tongue disorder [None]
  - Protrusion tongue [None]
  - Mental status changes [None]
  - Unresponsive to stimuli [None]
  - Hypoaesthesia [None]
  - Hypokinesia [None]
  - Blood glucose decreased [None]
  - Hypotension [None]
  - Dysarthria [None]
  - Reduced facial expression [None]

NARRATIVE: CASE EVENT DATE: 20190206
